FAERS Safety Report 20570536 (Version 2)
Quarter: 2022Q1

REPORT INFORMATION
  Report Type: Spontaneous
  Country: JP (occurrence: JP)
  Receive Date: 20220309
  Receipt Date: 20220318
  Transmission Date: 20220423
  Serious: Yes (Hospitalization)
  Sender: FDA-Public Use
  Company Number: JP-MTPC-MTPC2022-0005409

PATIENT
  Age: 4 Decade
  Sex: Female

DRUGS (5)
  1. CANAGLIFLOZIN [Suspect]
     Active Substance: CANAGLIFLOZIN
     Indication: Product used for unknown indication
     Dosage: 100 MILLIGRAM, QD
     Route: 048
  2. INSULINS AND ANALOGUES FOR INJECTION, LONG-ACTING [Concomitant]
     Dosage: 10 INTERNATIONAL UNIT, QD
     Route: 065
  3. INSULINS AND ANALOGUES FOR INJECTION, LONG-ACTING [Concomitant]
     Dosage: 4 INTERNATIONAL UNIT, QD
     Route: 065
  4. METFORMIN HYDROCHLORIDE [Concomitant]
     Active Substance: METFORMIN HYDROCHLORIDE
     Dosage: 1000 MILLIGRAM, QD
     Route: 048
  5. INSULIN ASPART(GENETICAL RECOMBINATION) [Concomitant]
     Dosage: 7UNIT-8UNIT-8UNIT, TID
     Route: 065

REACTIONS (1)
  - Gastroenteritis [Unknown]
